FAERS Safety Report 6564855-7 (Version None)
Quarter: 2010Q1

REPORT INFORMATION
  Report Type: 
  Country: None (occurrence: None)
  Receive Date: 20100201
  Receipt Date: 20100120
  Transmission Date: 20100710
  Serious: Yes (Hospitalization, Other)
  Sender: FDA-Public Use
  Company Number: FR-PFIZER INC-2010009036

PATIENT
  Age: 38 Year
  Sex: Female

DRUGS (8)
  1. ATARAX [Suspect]
     Indication: PSYCHOTIC DISORDER
     Dosage: 75 MG, UNK
  2. RIVOTRIL [Suspect]
     Indication: BIPOLAR I DISORDER
     Dosage: 2 MG, UNK
     Route: 048
  3. LEPONEX ^NOVARTIS^ [Suspect]
     Indication: PSYCHOTIC DISORDER
     Dosage: 300 MG, UNK
     Route: 048
     Dates: start: 20070214
  4. LEPONEX ^NOVARTIS^ [Suspect]
     Route: 048
  5. ABILIFY [Suspect]
     Indication: BIPOLAR I DISORDER
     Dosage: 30 MG, UNK
     Route: 048
     Dates: start: 20090201
  6. NOZINAN [Suspect]
     Indication: PSYCHOTIC DISORDER
     Dosage: 100 MG, UNK
     Route: 048
     Dates: start: 20070214
  7. NOZINAN [Suspect]
     Route: 048
  8. CYMBALTA [Suspect]
     Indication: PSYCHOTIC DISORDER
     Dosage: 60 MG, UNK
     Route: 048
     Dates: start: 20090201

REACTIONS (3)
  - EPILEPSY [None]
  - MANIA [None]
  - MULTIPLE FRACTURES [None]
